FAERS Safety Report 7898796-X (Version None)
Quarter: 2011Q4

REPORT INFORMATION
  Report Type: 
  Country: None (occurrence: None)
  Receive Date: 20111107
  Receipt Date: 20111012
  Transmission Date: 20120403
  Serious: No
  Sender: FDA-Public Use
  Company Number: US-ABBOTT-11P-163-0864302-00

PATIENT
  Sex: Female
  Weight: 99.88 kg

DRUGS (2)
  1. LISINOPRIL [Suspect]
     Indication: BLOOD PRESSURE
     Dates: start: 20100101
  2. TRICOR [Suspect]
     Indication: BLOOD CHOLESTEROL
     Dates: start: 20100101

REACTIONS (1)
  - DYSPNOEA EXERTIONAL [None]
